FAERS Safety Report 6702018-2 (Version None)
Quarter: 2010Q2

REPORT INFORMATION
  Report Type: 
  Country: None (occurrence: None)
  Receive Date: 20100429
  Receipt Date: 20100421
  Transmission Date: 20101027
  Serious: Yes (Death, Other)
  Sender: FDA-Public Use
  Company Number: JP-PFIZER INC-2010043825

PATIENT
  Age: 69 Year
  Sex: Female

DRUGS (12)
  1. SOLU-CORTEF [Suspect]
     Indication: ASTHMA
     Dosage: 400 MG, 2X/DAY
     Route: 042
  2. URSO 250 [Concomitant]
     Dosage: UNK
     Route: 048
  3. LIVACT [Concomitant]
     Dosage: UNK
     Route: 048
  4. MUCOSTA [Concomitant]
     Dosage: UNK
     Route: 048
  5. LASIX [Concomitant]
     Dosage: UNK
     Route: 048
  6. ALDACTONE [Concomitant]
     Dosage: UNK
     Route: 048
  7. CONIEL [Concomitant]
     Dosage: UNK
     Route: 048
  8. HOKUNALIN [Concomitant]
     Dosage: UNK
     Route: 062
  9. RINDERON [Concomitant]
     Dosage: UNK
     Route: 048
     Dates: start: 20100402, end: 20100404
  10. SOLITA-T 3G [Concomitant]
     Dosage: UNK
     Route: 042
     Dates: start: 20100329, end: 20100331
  11. NEOPHYLLIN [Concomitant]
     Dosage: UNK
     Route: 042
     Dates: start: 20100329, end: 20100329
  12. SOLU-MEDROL [Concomitant]
     Dosage: UNK
     Route: 042
     Dates: start: 20100401

REACTIONS (1)
  - ACUTE HEPATIC FAILURE [None]
